FAERS Safety Report 17908565 (Version 3)
Quarter: 2020Q2

REPORT INFORMATION
  Report Type: Spontaneous
  Country: SA (occurrence: SA)
  Receive Date: 20200617
  Receipt Date: 20200625
  Transmission Date: 20200714
  Serious: Yes (Life-Threatening, Other)
  Sender: FDA-Public Use
  Company Number: SA-PFIZER INC-2020232522

PATIENT
  Age: 60 Year
  Sex: Female
  Weight: 60 kg

DRUGS (17)
  1. ATRACURIUM BESILATE [Suspect]
     Active Substance: ATRACURIUM BESYLATE
     Indication: ANAESTHESIA
     Dosage: 35 MG, UNK
  2. THIOPENTONE SODIUM [Suspect]
     Active Substance: THIOPENTAL SODIUM
     Indication: ANAESTHESIA
     Dosage: 275 MG, UNK
  3. DROPERIDOL. [Suspect]
     Active Substance: DROPERIDOL
     Indication: ANAESTHESIA
     Dosage: 2.5 MG, UNK
  4. GENTAMICIN. [Concomitant]
     Active Substance: GENTAMICIN
     Dosage: 60 MG POSTOPERATIVELY.
     Route: 042
  5. CEFAZOLIN [Suspect]
     Active Substance: CEFAZOLIN
     Indication: ANTIBIOTIC THERAPY
     Dosage: 2.25 MG (INTRAVITREAL)
     Route: 031
  6. ENFLURANE. [Suspect]
     Active Substance: ENFLURANE
     Indication: ANAESTHESIA
     Dosage: UNK
     Route: 055
  7. HYDROCHLOROTHIAZIDE. [Concomitant]
     Active Substance: HYDROCHLOROTHIAZIDE
     Indication: HYPERTENSION
     Dosage: UNK
  8. CEFAZOLIN [Suspect]
     Active Substance: CEFAZOLIN
     Dosage: 50 MG (SUBCONJUNCTIVAL)
     Route: 057
  9. ACETAZOLAMIDE. [Suspect]
     Active Substance: ACETAZOLAMIDE
     Indication: ANAESTHESIA
     Dosage: 500 MG, UNK
     Route: 042
  10. OXYGEN. [Concomitant]
     Active Substance: OXYGEN
     Indication: ANAESTHESIA
     Dosage: UNK (MAX 1.5 %)
     Route: 055
  11. NITROUS OXIDE. [Concomitant]
     Active Substance: NITROUS OXIDE
     Indication: ANAESTHESIA
     Dosage: UNK
     Route: 055
  12. ATRACURIUM BESILATE [Suspect]
     Active Substance: ATRACURIUM BESYLATE
     Indication: HYPOTONIA
  13. CEFAZOLIN [Suspect]
     Active Substance: CEFAZOLIN
     Dosage: 1 G (OVER 4 HOURS)
     Route: 042
  14. GENTAMICIN. [Concomitant]
     Active Substance: GENTAMICIN
     Dosage: 40 MG, DURING SURGERY
     Route: 057
  15. FENTANYL. [Suspect]
     Active Substance: FENTANYL
     Indication: ANAESTHESIA
     Dosage: 0.1 MG, UNK
  16. POTASSIUM CHLORIDE. [Concomitant]
     Active Substance: POTASSIUM CHLORIDE
     Indication: HYPOKALAEMIA
     Dosage: 40 MMOL (FIRST HOUR OF THE PROCEDURE)
     Route: 040
  17. GENTAMICIN. [Concomitant]
     Active Substance: GENTAMICIN
     Dosage: 0.3 MG INTRAVITREAL
     Route: 031

REACTIONS (6)
  - Nodal arrhythmia [Unknown]
  - Cyanosis [Unknown]
  - Obstructive airways disorder [Unknown]
  - Hypotension [Recovered/Resolved]
  - Status epilepticus [Recovered/Resolved]
  - Acidosis [Recovered/Resolved]
